FAERS Safety Report 6913628-1 (Version None)
Quarter: 2010Q3

REPORT INFORMATION
  Report Type: 
  Country: None (occurrence: None)
  Receive Date: 20100805
  Receipt Date: 20100805
  Transmission Date: 20110219
  Serious: No
  Sender: FDA-Public Use
  Company Number: None

PATIENT
  Sex: Female
  Weight: 45.269 kg

DRUGS (9)
  1. AUGMENTIN '500' [Suspect]
     Indication: UPPER RESPIRATORY TRACT INFECTION
     Dosage: 500 MG PO Q12H
     Route: 048
     Dates: start: 20100712, end: 20100719
  2. DIGOXIN [Concomitant]
  3. GLUCERNA [Concomitant]
  4. SENNA [Concomitant]
  5. OMEPRAZOLE [Concomitant]
  6. DOCUSATE [Concomitant]
  7. FUROSEMIDE [Concomitant]
  8. IVITE [Concomitant]
  9. KLORCOR [Concomitant]

REACTIONS (2)
  - DERMATITIS ALLERGIC [None]
  - PETECHIAE [None]
